FAERS Safety Report 6286623-6 (Version None)
Quarter: 2009Q3

REPORT INFORMATION
  Report Type: 
  Country: None (occurrence: None)
  Receive Date: 20090728
  Receipt Date: 20090715
  Transmission Date: 20100115
  Serious: Yes (Other)
  Sender: FDA-Public Use
  Company Number: PHHY2009BR28826

PATIENT
  Sex: Female

DRUGS (4)
  1. DIOVAN HCT [Suspect]
     Dosage: 80/12.5 MG
  2. DIOVAN HCT [Suspect]
     Dosage: 1 TABLET (160/25 MG) DAILY
  3. DIOVAN HCT [Suspect]
     Dosage: 80/12.5 MG
  4. ATENOLOL [Concomitant]
     Dosage: UNK

REACTIONS (7)
  - BLINDNESS [None]
  - BLOOD PRESSURE INCREASED [None]
  - CHEST PAIN [None]
  - DIZZINESS [None]
  - FEELING ABNORMAL [None]
  - RESPIRATORY DISORDER [None]
  - TACHYCARDIA [None]
